FAERS Safety Report 9692557 (Version 1)
Quarter: 2013Q4

REPORT INFORMATION
  Report Type: Spontaneous
  Country: AU (occurrence: AU)
  Receive Date: 20131118
  Receipt Date: 20131118
  Transmission Date: 20140711
  Serious: Yes (Other)
  Sender: FDA-Public Use
  Company Number: AU-JNJFOC-20131107259

PATIENT
  Sex: Female

DRUGS (1)
  1. DOXORUBICIN HYDROCHLORIDE(CAELYX) [Suspect]
     Indication: OVARIAN CANCER
     Dosage: DOSE NOT RECALLED PLUS 30MG/4WEEKS. TIME OF TREATMENT PLUS 5 YEARS
     Route: 042

REACTIONS (1)
  - Squamous cell carcinoma [Recovered/Resolved]
